FAERS Safety Report 18974010 (Version 1)
Quarter: 2021Q1

REPORT INFORMATION
  Report Type: Spontaneous
  Country: FI (occurrence: FI)
  Receive Date: 20210305
  Receipt Date: 20210305
  Transmission Date: 20210420
  Serious: Yes (Hospitalization)
  Sender: FDA-Public Use
  Company Number: NVSC2021FI046603

PATIENT
  Age: 75 Year
  Sex: Male

DRUGS (31)
  1. DEXAMETHASONE. [Suspect]
     Active Substance: DEXAMETHASONE
     Indication: CYTOKINE RELEASE SYNDROME
     Dosage: 20 MG, Q8H
     Route: 042
     Dates: start: 20201126
  2. DEXAMETHASONE. [Suspect]
     Active Substance: DEXAMETHASONE
     Indication: NEUROTOXICITY
     Dosage: 9 MG, Q8H
     Route: 048
     Dates: start: 20201129, end: 20201130
  3. DEXAMETHASONE. [Suspect]
     Active Substance: DEXAMETHASONE
     Dosage: 10 MG, Q12H
     Route: 048
     Dates: start: 20210115, end: 20210118
  4. CYCLOPHOSPHAMIDE. [Suspect]
     Active Substance: CYCLOPHOSPHAMIDE
     Indication: B-CELL LYMPHOMA
     Dosage: 300 MG/M2, DAILY
     Route: 042
     Dates: start: 20201111, end: 20201113
  5. TOCILIZUMAB. [Suspect]
     Active Substance: TOCILIZUMAB
     Indication: PYREXIA
  6. LEVETIRACETAM. [Concomitant]
     Active Substance: LEVETIRACETAM
     Indication: NEUROTOXICITY
     Dosage: 1000 MG, Q12H
     Route: 048
     Dates: start: 20201125
  7. DEXAMETHASONE. [Suspect]
     Active Substance: DEXAMETHASONE
     Indication: PYREXIA
     Dosage: 10 MG, Q24H
     Route: 042
     Dates: start: 20201121
  8. CEFTRIAXONE. [Concomitant]
     Active Substance: CEFTRIAXONE
     Indication: PROPHYLAXIS
     Dosage: 2 G, Q24H
     Route: 042
     Dates: start: 20201121
  9. DEXAMETHASONE. [Suspect]
     Active Substance: DEXAMETHASONE
     Dosage: 6 MG, Q12H
     Route: 048
     Dates: start: 20201130, end: 20201201
  10. DEXAMETHASONE. [Suspect]
     Active Substance: DEXAMETHASONE
     Dosage: 4 MG, Q12H
     Route: 048
     Dates: start: 20201202, end: 20201203
  11. TOCILIZUMAB. [Suspect]
     Active Substance: TOCILIZUMAB
     Indication: CYTOKINE RELEASE SYNDROME
     Dosage: 760 MG, ONCE/SINGLE
     Route: 042
     Dates: start: 20201121
  12. OXYCONTIN [Suspect]
     Active Substance: OXYCODONE HYDROCHLORIDE
     Indication: CANCER PAIN
     Dosage: UNK (PRN)
     Route: 048
     Dates: start: 20200829
  13. FURESIS [Concomitant]
     Active Substance: FUROSEMIDE
     Dosage: 20 MG, Q24H
     Route: 048
     Dates: start: 20201121
  14. PREDNISOLONE. [Concomitant]
     Active Substance: PREDNISOLONE
     Indication: PRODUCT USED FOR UNKNOWN INDICATION
     Dosage: 10 MG, Q24H
     Route: 048
  15. COTRIM FORTE [Concomitant]
     Active Substance: SULFAMETHOXAZOLE\TRIMETHOPRIM
     Indication: INFECTION PROPHYLAXIS
     Dosage: 3 DF, QW (1 TABLET, 3/WEEK)
     Route: 048
     Dates: start: 20200819
  16. DEXAMETHASONE. [Suspect]
     Active Substance: DEXAMETHASONE
     Indication: STEROID THERAPY
     Dosage: 10 MG, Q8H
     Route: 042
     Dates: start: 20201125
  17. OXYCONTIN [Suspect]
     Active Substance: OXYCODONE HYDROCHLORIDE
     Dosage: 10 MG, Q12H
     Route: 048
     Dates: start: 20201221, end: 20201228
  18. DEXAMETHASONE. [Suspect]
     Active Substance: DEXAMETHASONE
     Indication: PROPHYLAXIS
     Dosage: 10 MG, Q8H
     Route: 042
     Dates: start: 20201128, end: 20201129
  19. DEXAMETHASONE. [Suspect]
     Active Substance: DEXAMETHASONE
     Dosage: 6 MG, Q12H
     Route: 048
     Dates: start: 20200118, end: 20210122
  20. DEXAMETHASONE. [Suspect]
     Active Substance: DEXAMETHASONE
     Dosage: 10 MG, DAILY [6+4 MG, 1 IN 12 HOURS]
     Route: 048
     Dates: start: 20210123
  21. OXYCONTIN [Suspect]
     Active Substance: OXYCODONE HYDROCHLORIDE
     Dosage: 40 MG, Q12H
     Route: 048
     Dates: start: 20201128
  22. PEGORION [Concomitant]
     Active Substance: POLYETHYLENE GLYCOL 4000
     Indication: CONSTIPATION PROPHYLAXIS
     Dosage: 24 MG, Q12H
     Route: 048
     Dates: start: 20201120
  23. OXYCONTIN [Suspect]
     Active Substance: OXYCODONE HYDROCHLORIDE
     Indication: NEURALGIA
     Dosage: 20 MG, Q12H
     Route: 048
     Dates: start: 20201007
  24. OXYCONTIN [Suspect]
     Active Substance: OXYCODONE HYDROCHLORIDE
     Dosage: 30 MG, Q12H
     Route: 048
     Dates: start: 20201221
  25. FURESIS [Concomitant]
     Active Substance: FUROSEMIDE
     Indication: OEDEMA PERIPHERAL
     Dosage: 20 MG, Q12H
     Route: 048
     Dates: start: 20201215
  26. FURESIS [Concomitant]
     Active Substance: FUROSEMIDE
     Dosage: 40 MG, Q24H
     Route: 048
     Dates: start: 20201118
  27. PREDNISOLONE. [Concomitant]
     Active Substance: PREDNISOLONE
     Dosage: 20 MG, Q24H
     Route: 048
  28. FILGRASTIM [Concomitant]
     Active Substance: FILGRASTIM
     Indication: NEUTROPENIA
     Dosage: 48000000 IU, Q24H
     Route: 058
     Dates: start: 20201125
  29. ONDANSETRON [Concomitant]
     Active Substance: ONDANSETRON
     Indication: NAUSEA
     Dosage: 16 MG, Q12H
     Route: 048
     Dates: start: 20201118
  30. FLUDARABINE [Suspect]
     Active Substance: FLUDARABINE PHOSPHATE
     Indication: B-CELL LYMPHOMA
     Dosage: 30 MG/M2, QD
     Route: 042
     Dates: start: 20201111, end: 20201113
  31. SOMAC [Concomitant]
     Active Substance: PANTOPRAZOLE SODIUM
     Indication: PROPHYLAXIS
     Dosage: 40 MG, Q24H
     Route: 048
     Dates: start: 20201006

REACTIONS (6)
  - Urinary retention [Unknown]
  - Impaired self-care [Unknown]
  - Tremor [Unknown]
  - Muscular weakness [Recovered/Resolved with Sequelae]
  - Dizziness [Unknown]
  - Constipation [Recovered/Resolved]

NARRATIVE: CASE EVENT DATE: 20210110
